FAERS Safety Report 21626742 (Version 1)
Quarter: 2022Q4

REPORT INFORMATION
  Report Type: Spontaneous
  Country: US (occurrence: US)
  Receive Date: 20221122
  Receipt Date: 20221122
  Transmission Date: 20230112
  Serious: No
  Sender: FDA-Public Use
  Company Number: US-LUNDBECK-DKLU3053827

PATIENT
  Age: 22 Month
  Sex: Male

DRUGS (1)
  1. SABRIL [Suspect]
     Active Substance: VIGABATRIN
     Indication: Product used for unknown indication
     Route: 065

REACTIONS (2)
  - Drug level below therapeutic [Unknown]
  - Product preparation issue [Unknown]
